FAERS Safety Report 5719094-6 (Version None)
Quarter: 2008Q2

REPORT INFORMATION
  Report Type: 
  Country: None (occurrence: None)
  Receive Date: 20080423
  Receipt Date: 20080411
  Transmission Date: 20081010
  Serious: Yes (Hospitalization)
  Sender: FDA-Public Use
  Company Number: 02100-JPN-08-0102

PATIENT
  Age: 72 Year
  Sex: Female
  Weight: 60 kg

DRUGS (17)
  1. PLETAL [Suspect]
     Indication: CEREBRAL INFARCTION
     Dosage: 100 MG, BID, ORAL
     Route: 048
     Dates: start: 20060908, end: 20070322
  2. PLETAL [Suspect]
     Indication: CEREBRAL INFARCTION
  3. DEPAS (ETIZOLAM) TABLET [Concomitant]
  4. ROHYPNOL (FLUNITRAZEPAM) TABLET [Concomitant]
  5. RESLIN (TRAZODONE HYDROCHLORIDE) TABLET [Concomitant]
  6. BASEN OD (VOGLIBOSE) TABLET [Concomitant]
  7. GLAKAY (MENATETRENONE) CAPSULE [Concomitant]
  8. VOLTAREN [Concomitant]
  9. BONALON (ALENDRONATE SODIUM HYDRATE) TABLET [Concomitant]
  10. GLIMICRON (GLICLAZIDE) TABLET [Concomitant]
  11. GASTER D (FAMOTIDINE) TABLET [Concomitant]
  12. ACTOS [Concomitant]
  13. NATEGLINIDE [Concomitant]
  14. MOHRUS TAPE (KETOPROFEN) [Concomitant]
  15. MUCOSOLVAN (AMBROXOL HYDROCHLORIDE) [Concomitant]
  16. LEVOFLOXACIN [Concomitant]
  17. BAYASPIRIN (ASPIRIN) DELAYED RELEASE TABLET [Concomitant]

REACTIONS (6)
  - ALOPECIA [None]
  - CEREBRAL INFARCTION [None]
  - DISEASE RECURRENCE [None]
  - NASOPHARYNGITIS [None]
  - PANCREATIC CARCINOMA STAGE IV [None]
  - PYREXIA [None]
